FAERS Safety Report 25963755 (Version 1)
Quarter: 2025Q4

REPORT INFORMATION
  Report Type: Spontaneous
  Country: US (occurrence: None)
  Receive Date: 20251027
  Receipt Date: 20251027
  Transmission Date: 20260117
  Serious: Yes (Other)
  Sender: FDA-CTU
  Company Number: None

PATIENT
  Age: 61 Year
  Sex: Female

DRUGS (9)
  1. SIMLANDI [Suspect]
     Active Substance: ADALIMUMAB-RYVK
     Indication: Axial spondyloarthritis
     Dosage: FREQUENCY : EVERY OTHER WEEK;?
     Route: 058
     Dates: start: 20250305
  2. BOOSTRIX INJ [Concomitant]
  3. CYCLOBENZAPR TAB 10MG [Concomitant]
  4. DEPO-MEDROL INJ 40MG/ML [Concomitant]
  5. DUROLANE INJ 60MG/3ML [Concomitant]
  6. LINZESS CAP 290MCG [Concomitant]
  7. MELOXICAM [Concomitant]
     Active Substance: MELOXICAM
  8. TYLENOL TAB 500MG [Concomitant]
  9. ZINC  TAB 50MG [Concomitant]

REACTIONS (2)
  - Pain in extremity [None]
  - Arthralgia [None]

NARRATIVE: CASE EVENT DATE: 20251024
